FAERS Safety Report 5456164-4 (Version None)
Quarter: 2007Q3

REPORT INFORMATION
  Report Type: 
  Country: None (occurrence: None)
  Receive Date: 20070918
  Receipt Date: 20070430
  Transmission Date: 20080115
  Serious: Yes (Other)
  Sender: FDA-Public Use
  Company Number: US-ASTRAZENECA-2006UW23663

PATIENT
  Sex: Female

DRUGS (5)
  1. SEROQUEL [Suspect]
     Route: 048
  2. CLOZARIL [Concomitant]
     Dates: start: 19980101
  3. RISPERDAL [Concomitant]
  4. THORAZINE [Concomitant]
     Dates: start: 20000101
  5. ZYPREXA [Concomitant]

REACTIONS (1)
  - PANCREATITIS [None]
